FAERS Safety Report 7584610-9 (Version None)
Quarter: 2011Q2

REPORT INFORMATION
  Report Type: 
  Country: None (occurrence: None)
  Receive Date: 20110630
  Receipt Date: 20110622
  Transmission Date: 20111010
  Serious: Yes (Hospitalization)
  Sender: FDA-Public Use
  Company Number: US-US-EMD SERONO, INC.-7066993

PATIENT
  Sex: Female
  Weight: 98 kg

DRUGS (9)
  1. VYTORIN [Concomitant]
  2. VITAMIN D [Concomitant]
  3. ACTOS [Concomitant]
     Indication: DIABETES MELLITUS
     Dates: start: 20050101
  4. ASPIRIN [Concomitant]
  5. STARLIX [Concomitant]
     Indication: DIABETES MELLITUS
     Dates: start: 20050101
  6. LISINOPRIL [Concomitant]
  7. REBIF [Suspect]
     Indication: MULTIPLE SCLEROSIS
     Route: 058
     Dates: start: 20051118
  8. METOPROLOL TARTRATE [Concomitant]
  9. LANTUS [Concomitant]
     Indication: DIABETES MELLITUS
     Dates: start: 20050101

REACTIONS (12)
  - HYPERTENSION [None]
  - SCIATIC NERVE INJURY [None]
  - HYPOTHYROIDISM [None]
  - OEDEMA PERIPHERAL [None]
  - HEART RATE INCREASED [None]
  - CORONARY ARTERY OCCLUSION [None]
  - HERPES ZOSTER [None]
  - DIZZINESS [None]
  - MYOCARDIAL INFARCTION [None]
  - OXYGEN SATURATION DECREASED [None]
  - DEPRESSION [None]
  - CHILLS [None]
